FAERS Safety Report 21766994 (Version 1)
Quarter: 2022Q4

REPORT INFORMATION
  Report Type: Spontaneous
  Country: ES (occurrence: ES)
  Receive Date: 20221222
  Receipt Date: 20221222
  Transmission Date: 20230113
  Serious: Yes (Hospitalization, Other)
  Sender: FDA-Public Use
  Company Number: ES-PFIZER INC-PV202200123090

PATIENT
  Age: 16 Year
  Sex: Female

DRUGS (1)
  1. LORAZEPAM [Suspect]
     Active Substance: LORAZEPAM
     Indication: Conversion disorder
     Dosage: 3 MG, DAILY (3 MG, PER DAY)

REACTIONS (2)
  - Syncope [Unknown]
  - Postural orthostatic tachycardia syndrome [Recovering/Resolving]
